FAERS Safety Report 5635482-0 (Version None)
Quarter: 2008Q1

REPORT INFORMATION
  Report Type: 
  Country: None (occurrence: None)
  Receive Date: 20080131
  Receipt Date: 20071126
  Transmission Date: 20080703
  Serious: No
  Sender: FDA-Public Use
  Company Number: US200711005866

PATIENT
  Sex: Female

DRUGS (3)
  1. BYETTA [Suspect]
     Dosage: 5 UG, 2/D, SUBCUTANEOUS; 5 UG, SUBCUTANEOUS
     Route: 058
     Dates: start: 20071101
  2. BYETTA [Suspect]
     Dosage: 5 UG, 2/D, SUBCUTANEOUS; 5 UG, SUBCUTANEOUS
     Route: 058
     Dates: start: 20071123
  3. EXENATIDE (EXENATIDE PEN) [Concomitant]

REACTIONS (4)
  - CONSTIPATION [None]
  - DYSPEPSIA [None]
  - HEADACHE [None]
  - TINNITUS [None]
